FAERS Safety Report 19477946 (Version 3)
Quarter: 2023Q2

REPORT INFORMATION
  Report Type: Spontaneous
  Country: ES (occurrence: ES)
  Receive Date: 20210630
  Receipt Date: 20230406
  Transmission Date: 20230721
  Serious: Yes (Life-Threatening, Hospitalization, Other)
  Sender: FDA-Public Use
  Company Number: ES-ASTRAZENECA-2021A397871

PATIENT
  Age: 5 Year
  Sex: Female
  Weight: 23 kg

DRUGS (41)
  1. FENTANYL [Suspect]
     Active Substance: FENTANYL
     Indication: Product used for unknown indication
     Dosage: 3.5 MICROGRAM/KILOGRAM, Q1HR
     Route: 042
     Dates: start: 20210329, end: 20210402
  2. FENTANYL [Suspect]
     Active Substance: FENTANYL
     Dosage: 25 MICROGRAM
     Route: 042
     Dates: start: 20210403
  3. FENTANYL [Suspect]
     Active Substance: FENTANYL
     Dosage: 2.5 MICROMOLE PER KILOGRAM, Q1HR
     Route: 042
     Dates: start: 20210403, end: 20210405
  4. FENTANYL [Suspect]
     Active Substance: FENTANYL
     Dosage: 30 MICROGRAM
     Route: 042
     Dates: start: 20210329, end: 20210402
  5. MIDAZOLAM [Suspect]
     Active Substance: MIDAZOLAM
     Indication: Seizure
     Dosage: UNK UNK, Q1HR
     Route: 042
     Dates: start: 20210329, end: 20210404
  6. MIDAZOLAM [Suspect]
     Active Substance: MIDAZOLAM
     Indication: Sedation
     Dosage: UNK UNK, Q1HR
     Route: 042
     Dates: start: 20210402, end: 20210403
  7. MIDAZOLAM [Suspect]
     Active Substance: MIDAZOLAM
     Dosage: 2.5 MILLIGRAM
     Route: 042
     Dates: start: 20210402, end: 20210403
  8. MIDAZOLAM [Suspect]
     Active Substance: MIDAZOLAM
     Dosage: 4.1 MILLIGRAM/KILOGRAM, Q1HR
     Route: 065
     Dates: start: 20210329, end: 20210404
  9. MIDAZOLAM [Suspect]
     Active Substance: MIDAZOLAM
     Dosage: 0.34 MILLIGRAM/KILOGRAM
     Route: 065
     Dates: start: 20210402, end: 20210403
  10. PROPOFOL [Suspect]
     Active Substance: PROPOFOL
     Indication: Product used for unknown indication
     Dosage: 20 MILLIGRAM
     Route: 042
     Dates: start: 20210401, end: 20210403
  11. REMIFENTANIL HYDROCHLORIDE [Suspect]
     Active Substance: REMIFENTANIL HYDROCHLORIDE
     Indication: Withdrawal syndrome
     Dosage: 5 MILLIGRAM
     Route: 042
     Dates: start: 20210408, end: 20210411
  12. REMIFENTANIL HYDROCHLORIDE [Suspect]
     Active Substance: REMIFENTANIL HYDROCHLORIDE
     Dosage: UNK
     Route: 042
     Dates: start: 20210405, end: 20210407
  13. MOVANTIK [Suspect]
     Active Substance: NALOXEGOL OXALATE
     Indication: Product used for unknown indication
     Dosage: 2 DOSAGE FORM
     Route: 048
  14. MOVANTIK [Suspect]
     Active Substance: NALOXEGOL OXALATE
     Dosage: 2 DOSAGE FORM
     Route: 048
  15. MOVANTIK [Suspect]
     Active Substance: NALOXEGOL OXALATE
     Dosage: UNK
     Route: 048
  16. SEVOFLURANE [Suspect]
     Active Substance: SEVOFLURANE
     Indication: Sedation
     Dosage: UNK
     Route: 048
     Dates: start: 20210405, end: 20210407
  17. SEVOFLURANE [Suspect]
     Active Substance: SEVOFLURANE
     Dosage: 0.2 MILLILITER
     Route: 048
     Dates: start: 20210403
  18. SEVOFLURANE [Suspect]
     Active Substance: SEVOFLURANE
     Dosage: 10 MILLILITER, Q1HR
     Route: 048
     Dates: start: 20210403, end: 20210407
  19. SEVOFLURANE [Suspect]
     Active Substance: SEVOFLURANE
     Dosage: 0.15 MICROGRAM/KILOGRAM
     Route: 065
  20. CLORAZEPATE DIPOTASSIUM [Suspect]
     Active Substance: CLORAZEPATE DIPOTASSIUM
     Indication: Product used for unknown indication
     Dosage: UNK
     Route: 065
  21. DEXMEDETOMIDINE [Suspect]
     Active Substance: DEXMEDETOMIDINE
     Indication: Product used for unknown indication
     Dosage: UNK
     Route: 065
  22. KETAMINE [Suspect]
     Active Substance: KETAMINE
     Indication: Sedation
     Dosage: 25 MILLIGRAM
     Route: 042
     Dates: start: 20210402, end: 20210403
  23. KETAMINE [Suspect]
     Active Substance: KETAMINE
     Dosage: 3.8 MG/KG, Q1HR
     Route: 042
     Dates: start: 20210402, end: 20210403
  24. KETAMINE [Suspect]
     Active Substance: KETAMINE
     Dosage: UNK, Q1HR
     Route: 042
     Dates: start: 20210330
  25. RANITIDINE [Concomitant]
     Active Substance: RANITIDINE
     Dosage: 25 MILLIGRAM, QID
     Route: 042
     Dates: start: 20210329
  26. POLYETHYLENE GLYCOLS [Concomitant]
     Active Substance: POLYETHYLENE GLYCOLS
     Indication: Constipation
     Dosage: 6.9 GRAM, 3X/DAY
     Route: 065
     Dates: start: 20210408
  27. AMOXICILLIN\CLAVULANIC ACID [Concomitant]
     Active Substance: AMOXICILLIN\CLAVULANIC ACID
     Indication: Prophylaxis
     Dosage: 600 MILLIGRAM, 4X/DAY
     Route: 042
     Dates: start: 20210403
  28. AMOXICILLIN\CLAVULANIC ACID [Concomitant]
     Active Substance: AMOXICILLIN\CLAVULANIC ACID
     Dosage: 575 MILLIGRAM, 3X/DAY
     Route: 042
     Dates: start: 20210330, end: 20210403
  29. BUDESONIDE [Concomitant]
     Active Substance: BUDESONIDE
     Indication: Upper airway obstruction
     Dosage: 2 MILLIGRAM, ONCE
     Route: 065
     Dates: start: 20210403, end: 20210403
  30. FUROSEMIDE [Concomitant]
     Active Substance: FUROSEMIDE
     Indication: Hypervolaemia
     Dosage: 5 MILLIGRAM, TID
     Route: 065
     Dates: start: 20210331
  31. ONDANSETRON [Concomitant]
     Active Substance: ONDANSETRON
     Indication: Feeding intolerance
     Dosage: 25 MILLIGRAM,QID
     Route: 042
     Dates: start: 20210329
  32. ONDANSETRON [Concomitant]
     Active Substance: ONDANSETRON
     Indication: Prophylaxis
     Dosage: 4 MILLIGRAM
     Route: 042
     Dates: start: 20210403
  33. CISATRACURIUM [Concomitant]
     Active Substance: CISATRACURIUM
     Indication: Sedation
     Dosage: 3 MICROGRAM/KILOGRAM
     Route: 042
     Dates: start: 20210329, end: 20210404
  34. DEXAMETHASONE [Concomitant]
     Active Substance: DEXAMETHASONE
     Indication: Product used for unknown indication
     Dosage: 4 MILLIGRAM, 3X/DAY
     Route: 065
     Dates: start: 20210404
  35. EPINEPHRINE [Concomitant]
     Active Substance: EPINEPHRINE
     Indication: Product used for unknown indication
     Dosage: UNK
     Route: 065
  36. ROCURONIUM [Concomitant]
     Active Substance: ROCURONIUM BROMIDE
     Indication: Upper airway obstruction
     Dosage: 7 MILLIGRAM
     Route: 042
     Dates: start: 20210403, end: 20210404
  37. ROCURONIUM [Concomitant]
     Active Substance: ROCURONIUM BROMIDE
     Dosage: 15 MILLIGRAM
     Route: 065
     Dates: start: 20210329, end: 20210404
  38. ACETAZOLAMIDE [Concomitant]
     Active Substance: ACETAZOLAMIDE
     Indication: Fistula
     Dosage: 5 MILLIGRAM
     Route: 042
     Dates: start: 20210403, end: 20210403
  39. ACETAZOLAMIDE [Concomitant]
     Active Substance: ACETAZOLAMIDE
     Indication: Upper airway obstruction
     Dosage: 120 MILLIGRAM,BID
     Route: 042
     Dates: start: 20210331, end: 20210403
  40. ACETAMINOPHEN [Concomitant]
     Active Substance: ACETAMINOPHEN
     Indication: Sedation
     Dosage: 15 MILLIGRAM
     Route: 042
     Dates: start: 20210329, end: 20210404
  41. ACETAMINOPHEN [Concomitant]
     Active Substance: ACETAMINOPHEN
     Indication: Analgesic therapy
     Dosage: 350 MILLIGRAM,QID
     Route: 042
     Dates: start: 20210329

REACTIONS (3)
  - Laryngeal obstruction [Recovered/Resolved]
  - Withdrawal syndrome [Recovered/Resolved]
  - Off label use [Unknown]

NARRATIVE: CASE EVENT DATE: 20210403
